FAERS Safety Report 14128012 (Version 1)
Quarter: 2017Q4

REPORT INFORMATION
  Report Type: Spontaneous
  Country: US (occurrence: None)
  Receive Date: 20171025
  Receipt Date: 20171025
  Transmission Date: 20180321
  Serious: Yes (Hospitalization)
  Sender: FDA-Public Use
  Company Number: None

PATIENT
  Age: 84 Year
  Sex: Male

DRUGS (2)
  1. IBUPROFEN. [Suspect]
     Active Substance: IBUPROFEN
     Indication: PAIN
     Dates: end: 20170421
  2. WARFARIN [Suspect]
     Active Substance: WARFARIN
     Indication: ATRIAL FIBRILLATION
     Dates: start: 20131204

REACTIONS (7)
  - Haemoglobin decreased [None]
  - Nausea [None]
  - Vomiting [None]
  - Dyspnoea [None]
  - Dizziness [None]
  - Faeces discoloured [None]
  - Haemorrhage [None]

NARRATIVE: CASE EVENT DATE: 20170421
